FAERS Safety Report 7058454-0 (Version None)
Quarter: 2010Q4

REPORT INFORMATION
  Report Type: 
  Country: None (occurrence: None)
  Receive Date: 20101022
  Receipt Date: 20101015
  Transmission Date: 20110411
  Serious: Yes (Hospitalization, Other)
  Sender: FDA-Public Use
  Company Number: US-JNJFOC-20101004435

PATIENT
  Age: 50 Year
  Sex: Male

DRUGS (2)
  1. ULTRACET [Suspect]
     Indication: PRODUCT USED FOR UNKNOWN INDICATION
     Route: 065
  2. CYCLOBENZAPRINE [Suspect]
     Indication: PRODUCT USED FOR UNKNOWN INDICATION
     Route: 065

REACTIONS (7)
  - DYSARTHRIA [None]
  - HYPERTENSION [None]
  - INTENTIONAL DRUG MISUSE [None]
  - LETHARGY [None]
  - MUSCLE TWITCHING [None]
  - SELF INJURIOUS BEHAVIOUR [None]
  - TACHYCARDIA [None]
